FAERS Safety Report 9292611 (Version 1)
Quarter: 2013Q2

REPORT INFORMATION
  Report Type: Spontaneous
  Country: US (occurrence: US)
  Receive Date: 20130516
  Receipt Date: 20130516
  Transmission Date: 20140414
  Serious: Yes (Other)
  Sender: FDA-Public Use
  Company Number: US-SANOFI-AVENTIS-2013SA048653

PATIENT
  Sex: Female

DRUGS (1)
  1. ALLEGRA ALLERGY, 12 HR [Suspect]

REACTIONS (2)
  - Glaucoma [Unknown]
  - Eye irritation [Unknown]
